FAERS Safety Report 21133178 (Version 1)
Quarter: 2022Q3

REPORT INFORMATION
  Report Type: Spontaneous
  Country: US (occurrence: None)
  Receive Date: 20220726
  Receipt Date: 20220726
  Transmission Date: 20221027
  Serious: No
  Sender: FDA-Public Use
  Company Number: None

PATIENT
  Age: 63 Year
  Sex: Female
  Weight: 87.75 kg

DRUGS (18)
  1. REVLIMID [Suspect]
     Active Substance: LENALIDOMIDE
     Indication: Plasma cell myeloma
     Dosage: OTHER FREQUENCY : 21 ON/ 7OFF;?
     Route: 048
     Dates: start: 20210521
  2. ACYCLOVIR [Concomitant]
     Active Substance: ACYCLOVIR
  3. AMLODIPINE BESYLATE [Concomitant]
     Active Substance: AMLODIPINE BESYLATE
  4. clindamycin phosphate topica [Concomitant]
  5. dexamethasone 4 mg table [Concomitant]
  6. diclofenac potassium 50 mg tablet [Concomitant]
  7. humulog 15 units tid [Concomitant]
  8. Lantus 100 unit/mL subcutaneous solution [Concomitant]
  9. Lasix 20 mg tablet [Concomitant]
  10. LOSARTAN [Concomitant]
     Active Substance: LOSARTAN
  11. it	pantoprazole 40 mg tablet,delayed release [Concomitant]
  12. Percocet 5 mg-325 mg tablet [Concomitant]
  13. potassium chloride ER 20 mEq tablet,extended release [Concomitant]
  14. rosuvastatin 10 mg tablet [Concomitant]
  15. SINGULAIR [Concomitant]
     Active Substance: MONTELUKAST SODIUM
  16. spironolactone 25 mg tablet [Concomitant]
  17. tramadol 50 mg tablet [Concomitant]
  18. Zofran 4 mg tablet [Concomitant]

REACTIONS (1)
  - Diarrhoea [None]

NARRATIVE: CASE EVENT DATE: 20220719
